FAERS Safety Report 21697432 (Version 2)
Quarter: 2023Q1

REPORT INFORMATION
  Report Type: Spontaneous
  Country: US (occurrence: US)
  Receive Date: 20221208
  Receipt Date: 20230109
  Transmission Date: 20230417
  Serious: No
  Sender: FDA-Public Use
  Company Number: US-JNJFOC-20221166553

PATIENT
  Sex: Female

DRUGS (3)
  1. STELARA [Suspect]
     Active Substance: USTEKINUMAB
     Indication: Product used for unknown indication
     Route: 058
  2. GELSEMIUM SEMPERVIRENS ROOT [Concomitant]
     Active Substance: GELSEMIUM SEMPERVIRENS ROOT
  3. COFFEA CRUDA [Concomitant]
     Active Substance: ARABICA COFFEE BEAN

REACTIONS (4)
  - Eyelid ptosis [Recovered/Resolved]
  - Asthenopia [Unknown]
  - Insomnia [Unknown]
  - Dry eye [Unknown]
